FAERS Safety Report 24622618 (Version 1)
Quarter: 2024Q4

REPORT INFORMATION
  Report Type: Spontaneous
  Country: JP (occurrence: JP)
  Receive Date: 20241115
  Receipt Date: 20241115
  Transmission Date: 20250115
  Serious: Yes (Life-Threatening, Hospitalization, Other)
  Sender: BRISTOL-MYERS SQUIBB COMPANY
  Company Number: JP-BRISTOL-MYERS SQUIBB COMPANY-2024-176372

PATIENT
  Age: 44 Year
  Sex: Male

DRUGS (4)
  1. PACLITAXEL [Suspect]
     Active Substance: PACLITAXEL
     Indication: Non-small cell lung cancer stage III
     Dosage: ON DAYS 1, 8, AND 15
  2. DURVALUMAB [Suspect]
     Active Substance: DURVALUMAB
     Indication: Non-small cell lung cancer stage III
     Dosage: 1,500 MG/BODY, DAY 1
  3. TREMELIMUMAB [Suspect]
     Active Substance: TREMELIMUMAB
     Indication: Non-small cell lung cancer stage III
     Dosage: (75 MG/BODY, DAY 1)
  4. CARBOPLATIN [Suspect]
     Active Substance: CARBOPLATIN
     Indication: Non-small cell lung cancer stage III
     Dosage: (AN AREA UNDER THE CURVE OF 6) ON DAY 1

REACTIONS (6)
  - Oesophagomediastinal fistula [Recovering/Resolving]
  - Myocarditis [Recovering/Resolving]
  - Immune-mediated enterocolitis [Recovering/Resolving]
  - COVID-19 [Unknown]
  - Cytokine release syndrome [Recovering/Resolving]
  - Candida infection [Recovering/Resolving]
